FAERS Safety Report 20211630 (Version 1)
Quarter: 2021Q4

REPORT INFORMATION
  Report Type: Report from Study
  Country: US (occurrence: US)
  Receive Date: 20211221
  Receipt Date: 20211221
  Transmission Date: 20220303
  Serious: Yes (Other)
  Sender: FDA-Public Use
  Company Number: US-BAYER-2021A223106

PATIENT
  Age: 78 Year
  Sex: Female

DRUGS (2)
  1. STIVARGA [Suspect]
     Active Substance: REGORAFENIB
     Indication: Cholangiocarcinoma
     Dosage: 160 MG, QD FOR 21 DAYS ON AND 7 DAYS OFF
     Route: 048
     Dates: start: 20210914
  2. STIVARGA [Suspect]
     Active Substance: REGORAFENIB
     Indication: Cholangiocarcinoma
     Dosage: 160 MG, QD FOR 21 DAYS ON AND 7 DAYS OFF
     Route: 048

REACTIONS (15)
  - Metastases to liver [None]
  - Hypertension [Recovered/Resolved]
  - Headache [None]
  - Headache [None]
  - Hallucination [Recovered/Resolved]
  - Dysstasia [Recovered/Resolved]
  - Thinking abnormal [Recovered/Resolved]
  - Grip strength decreased [Recovered/Resolved]
  - Toothache [Recovered/Resolved]
  - Dental restoration failure [None]
  - Oral pain [None]
  - Dental restoration failure [None]
  - Fatigue [None]
  - Skin disorder [None]
  - Confusional state [Recovered/Resolved]
